FAERS Safety Report 23763454 (Version 1)
Quarter: 2024Q2

REPORT INFORMATION
  Report Type: Other
  Country: GB (occurrence: GB)
  Receive Date: 20240419
  Receipt Date: 20240419
  Transmission Date: 20240716
  Serious: Yes (Other)
  Sender: FDA-Public Use
  Company Number: None

PATIENT
  Age: 56 Year

DRUGS (7)
  1. OMNIPAQUE [Suspect]
     Active Substance: IOHEXOL
     Indication: Computerised tomogram
     Dosage: UNK, TOTAL
     Route: 065
     Dates: start: 20240403, end: 20240403
  2. BISOPROLOL [Concomitant]
     Active Substance: BISOPROLOL\BISOPROLOL FUMARATE
     Indication: Adverse drug reaction
     Dates: start: 20230501
  3. CLOPIDOGREL [Concomitant]
     Active Substance: CLOPIDOGREL BISULFATE
     Indication: Vascular stent stenosis
     Dates: start: 20230404, end: 20240404
  4. DAPAGLIFLOZIN [Concomitant]
     Active Substance: DAPAGLIFLOZIN
     Indication: Adverse drug reaction
     Dates: start: 20230501
  5. LANSOPRAZOLE [Concomitant]
     Active Substance: LANSOPRAZOLE
     Indication: Adverse drug reaction
     Dates: start: 20230501
  6. METFORMIN [Concomitant]
     Active Substance: METFORMIN HYDROCHLORIDE
     Indication: Myocardial infarction
     Dates: start: 20240101
  7. RAMIPRIL [Concomitant]
     Active Substance: RAMIPRIL
     Dates: start: 20230428

REACTIONS (6)
  - Medication error [Unknown]
  - Hypertension [Unknown]
  - Headache [Unknown]
  - Dizziness [Unknown]
  - Pain in extremity [Unknown]
  - Chest pain [Unknown]

NARRATIVE: CASE EVENT DATE: 20240403
